FAERS Safety Report 13707744 (Version 1)
Quarter: 2017Q2

REPORT INFORMATION
  Report Type: Spontaneous
  Country: FR (occurrence: FR)
  Receive Date: 20170630
  Receipt Date: 20170630
  Transmission Date: 20170830
  Serious: Yes (Other)
  Sender: FDA-Public Use
  Company Number: FR-BAYER-2017-124557

PATIENT
  Age: 29 Year
  Sex: Female
  Weight: 55 kg

DRUGS (1)
  1. MIRENA [Suspect]
     Active Substance: LEVONORGESTREL
     Indication: CONTRACEPTION
     Dosage: 20 MCG/24HR, CONT
     Route: 015
     Dates: start: 20150302

REACTIONS (9)
  - Pain [Unknown]
  - Basedow^s disease [Recovered/Resolved]
  - Psychiatric symptom [Unknown]
  - Fibrocystic breast disease [Unknown]
  - Loss of libido [Unknown]
  - Aggression [Unknown]
  - Breast mass [Unknown]
  - Abdominal pain lower [Unknown]
  - Fatigue [Unknown]

NARRATIVE: CASE EVENT DATE: 20160203
